FAERS Safety Report 25255787 (Version 1)
Quarter: 2025Q2

REPORT INFORMATION
  Report Type: Spontaneous
  Country: US (occurrence: None)
  Receive Date: 20250429
  Receipt Date: 20250429
  Transmission Date: 20250716
  Serious: Yes (Other)
  Sender: FDA-CTU
  Company Number: None

PATIENT
  Age: 51 Year
  Sex: Female
  Weight: 76.5 kg

DRUGS (1)
  1. GAMUNEX-C [Suspect]
     Active Substance: HUMAN IMMUNOGLOBULIN G
     Dosage: OTHER QUANTITY : 20 GM;?FREQUENCY : DAILY;?
     Route: 042
     Dates: start: 20250414, end: 20250414

REACTIONS (11)
  - Infusion related reaction [None]
  - Oedema [None]
  - Nausea [None]
  - Migraine [None]
  - Tremor [None]
  - Arrhythmia [None]
  - Pain [None]
  - Autonomic failure syndrome [None]
  - Syncope [None]
  - Heart rate decreased [None]
  - Blood pressure decreased [None]

NARRATIVE: CASE EVENT DATE: 20250414
